FAERS Safety Report 4922826-8 (Version None)
Quarter: 2006Q1

REPORT INFORMATION
  Report Type: 
  Country: None (occurrence: None)
  Receive Date: 20060224
  Receipt Date: 20050824
  Transmission Date: 20060701
  Serious: Yes (Hospitalization, Disabling)
  Sender: FDA-Public Use
  Company Number: US-MERCK-0508USA04240

PATIENT
  Age: 59 Year
  Sex: Male
  Weight: 100 kg

DRUGS (10)
  1. VIOXX [Suspect]
     Indication: PAIN
     Route: 048
     Dates: start: 20000802, end: 20040719
  2. VIOXX [Suspect]
     Indication: MONARTHRITIS
     Route: 048
     Dates: start: 20000802, end: 20040719
  3. ASPIRIN [Concomitant]
     Route: 065
  4. ZYRTEC [Concomitant]
     Indication: RASH
     Route: 065
     Dates: start: 20000908
  5. ZYRTEC [Concomitant]
     Indication: ASTHMA
     Route: 065
     Dates: start: 20000908
  6. ZOCOR [Concomitant]
     Route: 048
     Dates: start: 20000911
  7. TYLENOL W/ CODEINE NO. 3 [Concomitant]
     Route: 065
     Dates: start: 20000919
  8. ACETAMINOPHEN AND OXYCODONE HYDROCHLORIDE [Concomitant]
     Route: 065
     Dates: start: 20000929
  9. VICODIN [Concomitant]
     Route: 065
     Dates: start: 20000922
  10. PRAVACHOL [Concomitant]
     Route: 065

REACTIONS (15)
  - ARTHRALGIA [None]
  - ARTHROPATHY [None]
  - CHEST PAIN [None]
  - COLITIS ULCERATIVE [None]
  - DIVERTICULITIS [None]
  - MENISCUS LESION [None]
  - MYOCARDIAL INFARCTION [None]
  - OSTEOARTHRITIS [None]
  - PARANASAL SINUS DISCOMFORT [None]
  - ROTATOR CUFF SYNDROME [None]
  - SHOULDER PAIN [None]
  - TOOTH ABSCESS [None]
  - TRANSIENT ISCHAEMIC ATTACK [None]
  - TRIGGER FINGER [None]
  - VASOSPASM [None]
